FAERS Safety Report 7418599 (Version 2)
Quarter: 2013Q3

REPORT INFORMATION
  Report Type: Report from Study
  Country: US (occurrence: US)
  Receive Date: 20100614
  Receipt Date: 20130923
  Transmission Date: 20140515
  Serious: Yes (Hospitalization, Other)
  Sender: FDA-Public Use
  Company Number: US-ELI_LILLY_AND_COMPANY-US201006001764

PATIENT
  Age: 63 Year
  Sex: Female

DRUGS (1)
  1. OLANZAPINE [Suspect]
     Dosage: 40 MG, QD
     Route: 065
     Dates: start: 2008

REACTIONS (3)
  - Fall [Unknown]
  - Joint injury [Unknown]
  - Prescribed overdose [Not Recovered/Not Resolved]
